FAERS Safety Report 7743192-9 (Version None)
Quarter: 2011Q3

REPORT INFORMATION
  Report Type: 
  Country: None (occurrence: None)
  Receive Date: 20110819
  Receipt Date: 20110502
  Transmission Date: 20111222
  Serious: No
  Sender: FDA-Public Use
  Company Number: 033292

PATIENT
  Sex: Female
  Weight: 77.1 kg

DRUGS (2)
  1. LACOSAMIDE [Suspect]
     Indication: TRIGEMINAL NEURALGIA
     Dosage: 100 MG TID, 2 PILLS IN THE AFTERNOON AND ONE PILL IN NOON ORAL
     Route: 048
     Dates: start: 20101001
  2. NEURONTIN [Concomitant]

REACTIONS (2)
  - DRUG INEFFECTIVE [None]
  - FACIAL PAIN [None]
